FAERS Safety Report 9831863 (Version 1)
Quarter: 2014Q1

REPORT INFORMATION
  Report Type: Report from Study
  Country: DE (occurrence: DE)
  Receive Date: 20140121
  Receipt Date: 20140121
  Transmission Date: 20141002
  Serious: Yes (Other)
  Sender: FDA-Public Use
  Company Number: DE-SA-2014SA006517

PATIENT
  Age: 56 Year
  Sex: Male
  Weight: 110 kg

DRUGS (7)
  1. MULTAQ [Suspect]
     Indication: ATRIAL FIBRILLATION
     Route: 048
     Dates: start: 20120721
  2. DIGITALIS GLYCOSIDES [Concomitant]
     Dates: start: 201204, end: 201207
  3. BETA BLOCKING AGENTS [Concomitant]
     Dates: start: 201204
  4. FACTOR II (PROTHROMBIN) [Concomitant]
     Dates: start: 20120706
  5. XARELTO [Concomitant]
     Dates: start: 20120504
  6. RAMIPRIL [Concomitant]
     Dates: start: 20120630
  7. METOPROLOL [Concomitant]
     Dates: start: 20120504

REACTIONS (2)
  - Atrial fibrillation [Unknown]
  - General symptom [Unknown]
